FAERS Safety Report 5953940-6 (Version None)
Quarter: 2008Q4

REPORT INFORMATION
  Report Type: 
  Country: None (occurrence: None)
  Receive Date: 20081114
  Receipt Date: 20081103
  Transmission Date: 20090506
  Serious: Yes (Hospitalization, Other)
  Sender: FDA-Public Use
  Company Number: BE-PFIZER INC-2008088825

PATIENT
  Sex: Female

DRUGS (1)
  1. SU-011,248 [Suspect]
     Route: 048
     Dates: start: 20081001, end: 20081013

REACTIONS (5)
  - ANAEMIA [None]
  - ANOREXIA [None]
  - ATRIAL FIBRILLATION [None]
  - DEHYDRATION [None]
  - DIARRHOEA [None]
